FAERS Safety Report 7713593-3 (Version None)
Quarter: 2011Q3

REPORT INFORMATION
  Report Type: 
  Country: None (occurrence: None)
  Receive Date: 20110826
  Receipt Date: 20110823
  Transmission Date: 20111222
  Serious: Yes (Hospitalization)
  Sender: FDA-Public Use
  Company Number: US-PFIZER INC-2010166460

PATIENT
  Sex: Female
  Weight: 91.1 kg

DRUGS (14)
  1. IBUPROFEN [Suspect]
     Indication: OSTEOARTHRITIS
     Dosage: 600 MG, 3X/DAY
     Route: 048
     Dates: start: 20070907, end: 20101020
  2. NEXIUM [Concomitant]
     Indication: PROPHYLAXIS
     Dosage: UNK
     Dates: start: 20070907, end: 20101020
  3. GLUCOTROL [Concomitant]
     Dosage: UNK
     Route: 048
     Dates: start: 20090505
  4. ALBUTEROL SULFATE [Concomitant]
     Dosage: UNK
     Route: 055
     Dates: start: 20000101
  5. FUROSEMIDE [Concomitant]
     Dosage: UNK
     Route: 048
     Dates: start: 20040101
  6. ZYRTEC [Concomitant]
     Dosage: UNK
     Route: 048
     Dates: start: 20000101
  7. CENTRUM [Concomitant]
     Dosage: UNK
     Route: 048
     Dates: start: 19870101
  8. BENAZEPRIL [Concomitant]
     Dosage: UNK
     Route: 048
     Dates: start: 20080415
  9. METFORMIN [Concomitant]
     Dosage: UNK
     Route: 048
     Dates: start: 20090505
  10. CALCIUM [Concomitant]
     Dosage: UNK
     Route: 048
     Dates: start: 20060801
  11. IBUPROFEN [Suspect]
     Indication: RHEUMATOID ARTHRITIS
  12. CLONIDINE [Concomitant]
     Dosage: UNK
     Route: 048
     Dates: start: 20090505
  13. LOTREL [Concomitant]
     Dosage: UNK
     Route: 048
     Dates: start: 20050101
  14. NORVASC [Concomitant]
     Dosage: UNK
     Route: 048
     Dates: start: 20080415

REACTIONS (1)
  - COLONIC POLYP [None]
